FAERS Safety Report 24669866 (Version 3)
Quarter: 2024Q4

REPORT INFORMATION
  Report Type: Spontaneous
  Country: US (occurrence: US)
  Receive Date: 20241127
  Receipt Date: 20241227
  Transmission Date: 20250115
  Serious: Yes (Other)
  Sender: ABBVIE
  Company Number: US-ABBVIE-6015333

PATIENT
  Age: 61 Year
  Sex: Male
  Weight: 88 kg

DRUGS (10)
  1. VENETOCLAX [Suspect]
     Active Substance: VENETOCLAX
     Indication: Chronic lymphocytic leukaemia
     Route: 048
     Dates: start: 202309
  2. VENETOCLAX [Suspect]
     Active Substance: VENETOCLAX
     Indication: Chronic lymphocytic leukaemia
     Dosage: DOSE HAD BEEN LOWERED
     Route: 048
  3. OCTAGAM IMMUNE GLOBULIN (HUMAN) [Suspect]
     Active Substance: HUMAN IMMUNOGLOBULIN G
     Indication: Product used for unknown indication
     Dosage: OCTAGAM 5 %
     Route: 065
  4. OCTAGAM IMMUNE GLOBULIN (HUMAN) [Suspect]
     Active Substance: HUMAN IMMUNOGLOBULIN G
     Indication: Product used for unknown indication
     Dosage: OCTAGAM (PF) 10 %?G 25,000 MG?STOP DATE 2024
     Route: 065
     Dates: start: 20240711
  5. OCTAGAM IMMUNE GLOBULIN (HUMAN) [Suspect]
     Active Substance: HUMAN IMMUNOGLOBULIN G
     Indication: Product used for unknown indication
     Dosage: OCTAGAM (PF) 10 %?G 25,000 MG?STOP DATE 2024
     Route: 065
     Dates: start: 20240808
  6. OCTAGAM IMMUNE GLOBULIN (HUMAN) [Suspect]
     Active Substance: HUMAN IMMUNOGLOBULIN G
     Indication: Product used for unknown indication
     Dosage: OCTAGAM (PF) 10 %?G 25,000 MG?STOP DATE 2024
     Route: 065
     Dates: start: 20240905
  7. OCTAGAM IMMUNE GLOBULIN (HUMAN) [Suspect]
     Active Substance: HUMAN IMMUNOGLOBULIN G
     Indication: Product used for unknown indication
     Dosage: OCTAGAM (PF) 10 %?BOULDER G 25,000 MG?STOP DATE 2024
     Route: 065
     Dates: start: 20241003
  8. OCTAGAM IMMUNE GLOBULIN (HUMAN) [Suspect]
     Active Substance: HUMAN IMMUNOGLOBULIN G
     Indication: Product used for unknown indication
     Dosage: OCTAGAM (PF) 10 %?BOULDER G 25,000 MG (300 MG)?STOP DATE 2024
     Route: 065
     Dates: start: 20241031
  9. ALLOPURINOL [Suspect]
     Active Substance: ALLOPURINOL
     Indication: Product used for unknown indication
     Route: 065
  10. OBINUTUZUMAB [Suspect]
     Active Substance: OBINUTUZUMAB
     Indication: Product used for unknown indication
     Dosage: FINAL DOSE
     Route: 065
     Dates: start: 202311

REACTIONS (8)
  - Secondary immunodeficiency [Unknown]
  - Diarrhoea [Unknown]
  - Lymphocytosis [Recovered/Resolved]
  - Pruritus [Recovering/Resolving]
  - Gout [Unknown]
  - Rash [Recovered/Resolved]
  - Drug eruption [Unknown]
  - Nausea [Unknown]

NARRATIVE: CASE EVENT DATE: 20231101
